FAERS Safety Report 11060280 (Version 10)
Quarter: 2016Q1

REPORT INFORMATION
  Report Type: Report from Study
  Country: US (occurrence: US)
  Receive Date: 20150423
  Receipt Date: 20160311
  Transmission Date: 20160525
  Serious: Yes (Hospitalization, Other)
  Sender: FDA-Public Use
  Company Number: US-AMGEN-USASL2015024375

PATIENT
  Age: 85 Year
  Sex: Male

DRUGS (6)
  1. TUDORZA PRESSAIR [Concomitant]
     Active Substance: ACLIDINIUM BROMIDE
     Indication: DYSPNOEA
     Dosage: UNK UNK, BID
  2. KYPROLIS [Suspect]
     Active Substance: CARFILZOMIB
     Indication: PLASMA CELL MYELOMA
     Dosage: UNK, 2 TIMES/WK
     Route: 042
     Dates: start: 20150309
  3. XARELTO [Concomitant]
     Active Substance: RIVAROXABAN
     Indication: BLOOD DISORDER
     Dosage: UNK
  4. WARFARIN [Concomitant]
     Active Substance: WARFARIN
     Indication: THROMBOSIS
  5. WARFARIN [Concomitant]
     Active Substance: WARFARIN
     Indication: EMBOLISM
     Dosage: UNK
  6. SPIRIVA [Concomitant]
     Active Substance: TIOTROPIUM BROMIDE MONOHYDRATE
     Indication: LUNG DISORDER
     Dosage: UNK

REACTIONS (15)
  - Haemoglobin abnormal [Not Recovered/Not Resolved]
  - Unevaluable event [Unknown]
  - Dyspnoea [Unknown]
  - Stent placement [Unknown]
  - Feeling abnormal [Unknown]
  - Bone pain [Unknown]
  - Bowel movement irregularity [Unknown]
  - Thrombosis [Recovering/Resolving]
  - Walking aid user [Not Recovered/Not Resolved]
  - Back pain [Not Recovered/Not Resolved]
  - Asthenia [Unknown]
  - Sciatica [Recovering/Resolving]
  - Abasia [Unknown]
  - Viral infection [Unknown]
  - Fatigue [Unknown]

NARRATIVE: CASE EVENT DATE: 2015
